FAERS Safety Report 9167639 (Version 1)
Quarter: 2013Q1

REPORT INFORMATION
  Report Type: Spontaneous
  Country: GB (occurrence: None)
  Receive Date: 20130314
  Receipt Date: 20130314
  Transmission Date: 20140127
  Serious: Yes (Death, Other)
  Sender: FDA-Public Use
  Company Number: 2013-00783

PATIENT
  Age: 52 Year
  Sex: Male
  Weight: 79.37 kg

DRUGS (6)
  1. SIMVASTATIN (SIMVASTATIN) [Suspect]
     Indication: BLOOD CHOLESTEROL INCREASED
     Route: 048
     Dates: end: 20120607
  2. FLUOXETINE [Suspect]
     Indication: ANXIETY
  3. MIRTAZAPINE [Suspect]
     Indication: ANXIETY
  4. ATENOLOL + CHLORTHALIDONE [Concomitant]
  5. LOSARTAN [Concomitant]
  6. OMEPRAZOLE + OMEPRAZOLE MAGNESIUM + OMEPRAZOLE SODIUM + OMEPRAZOLE SODIUM FOR INJECTION (LOSEC) [Concomitant]

REACTIONS (11)
  - Inflammation [None]
  - Pain in jaw [None]
  - Myalgia [None]
  - Muscle spasms [None]
  - Neck pain [None]
  - Paraesthesia [None]
  - Blood creatine phosphokinase increased [None]
  - Completed suicide [None]
  - Anxiety [None]
  - Depression [None]
  - Job dissatisfaction [None]
